FAERS Safety Report 15048888 (Version 1)
Quarter: 2018Q2

REPORT INFORMATION
  Report Type: Spontaneous
  Country: US (occurrence: US)
  Receive Date: 20180622
  Receipt Date: 20180622
  Transmission Date: 20180711
  Serious: No
  Sender: FDA-Public Use
  Company Number: US-ASTRAZENECA-2018SE70044

PATIENT
  Age: 22123 Day
  Sex: Female
  Weight: 97.1 kg

DRUGS (4)
  1. PREVACID [Concomitant]
     Active Substance: LANSOPRAZOLE
     Indication: GASTROOESOPHAGEAL REFLUX DISEASE
     Route: 048
  2. BYETTA [Suspect]
     Active Substance: EXENATIDE
     Indication: TYPE 2 DIABETES MELLITUS
     Route: 058
     Dates: start: 20180515, end: 20180610
  3. BYETTA [Suspect]
     Active Substance: EXENATIDE
     Indication: TYPE 2 DIABETES MELLITUS
     Route: 058
     Dates: start: 20180611
  4. PROMETHAZINE [Concomitant]
     Active Substance: PROMETHAZINE\PROMETHAZINE HYDROCHLORIDE

REACTIONS (7)
  - Mouth swelling [Recovering/Resolving]
  - Decreased appetite [Unknown]
  - Extra dose administered [Unknown]
  - Intentional device misuse [Unknown]
  - Drug dose omission [Unknown]
  - Nausea [Unknown]
  - Device leakage [Unknown]

NARRATIVE: CASE EVENT DATE: 20180613
